FAERS Safety Report 5208287-2 (Version None)
Quarter: 2007Q1

REPORT INFORMATION
  Report Type: 
  Country: None (occurrence: None)
  Receive Date: 20070110
  Receipt Date: 20070110
  Transmission Date: 20070707
  Serious: Yes (Disabling)
  Sender: FDA-Public Use
  Company Number: None

PATIENT
  Age: 73 Year
  Sex: Male
  Weight: 85 kg

DRUGS (1)
  1. NOREPINEPHRINE 4 MG [Suspect]
     Indication: HYPOTENSION
     Dosage: 4 MG IN 250 ML D5 TITRATE IV
     Route: 042
     Dates: start: 20061224, end: 20070102

REACTIONS (2)
  - INFUSION SITE ERYTHEMA [None]
  - INFUSION SITE NECROSIS [None]
